FAERS Safety Report 23903226 (Version 1)
Quarter: 2024Q2

REPORT INFORMATION
  Report Type: Spontaneous
  Country: US (occurrence: US)
  Receive Date: 20240527
  Receipt Date: 20240527
  Transmission Date: 20240716
  Serious: No
  Sender: FDA-Public Use
  Company Number: US-AMGEN-USASP2024101120

PATIENT
  Age: 61 Year
  Sex: Female

DRUGS (5)
  1. RITUXIMAB [Suspect]
     Active Substance: RITUXIMAB
     Indication: Polyarteritis nodosa
     Dosage: UNK
     Route: 065
  2. RITUXIMAB [Suspect]
     Active Substance: RITUXIMAB
     Indication: Chronic myelomonocytic leukaemia
  3. CEFEPIME [Concomitant]
     Active Substance: CEFEPIME HYDROCHLORIDE
     Indication: Intervertebral discitis
     Route: 042
  4. VANCOMYCIN [Concomitant]
     Active Substance: VANCOMYCIN
     Indication: Intervertebral discitis
  5. METRONIDAZOLE [Concomitant]
     Active Substance: METRONIDAZOLE
     Indication: Intervertebral discitis

REACTIONS (2)
  - Drug effective for unapproved indication [Unknown]
  - Off label use [Unknown]
